FAERS Safety Report 9248181 (Version 2)
Quarter: 2013Q2

REPORT INFORMATION
  Report Type: Spontaneous
  Country: CO (occurrence: CO)
  Receive Date: 20130423
  Receipt Date: 20130622
  Transmission Date: 20140414
  Serious: Yes (Death, Life-Threatening, Hospitalization, Disabling, Other)
  Sender: FDA-Public Use
  Company Number: CO-ASTRAZENECA-2013SE26741

PATIENT
  Age: 77 Year
  Sex: Male

DRUGS (1)
  1. BRILINTA [Suspect]
     Indication: ACUTE CORONARY SYNDROME
     Route: 048
     Dates: start: 20130418

REACTIONS (5)
  - Respiratory arrest [Fatal]
  - Coma [Not Recovered/Not Resolved]
  - Hypokalaemia [Unknown]
  - Haemorrhagic stroke [Not Recovered/Not Resolved]
  - Haematemesis [Unknown]
